FAERS Safety Report 15290863 (Version 1)
Quarter: 2018Q3

REPORT INFORMATION
  Report Type: Spontaneous
  Country: IT (occurrence: IT)
  Receive Date: 20180817
  Receipt Date: 20180817
  Transmission Date: 20181010
  Serious: Yes (Hospitalization)
  Sender: FDA-Public Use
  Company Number: IT-TEVA-2018-IT-943732

PATIENT
  Age: 71 Year
  Sex: Male

DRUGS (9)
  1. FLUXUM 4.250 U.I. AXA SOLUZIONE INIETTABILE IN SIRINGA PRERIEMPITA [Concomitant]
     Active Substance: PARNAPARIN SODIUM
     Route: 058
  2. TRITTICO 60 MG/ML GOCCE ORALI, SOLUZIONE [Concomitant]
     Active Substance: TRAZODONE HYDROCHLORIDE
     Route: 048
  3. LANSOPRAZOLE. [Concomitant]
     Active Substance: LANSOPRAZOLE
     Route: 048
  4. ATORVASTATIN [Concomitant]
     Active Substance: ATORVASTATIN
     Route: 048
  5. JANUVIA [Suspect]
     Active Substance: SITAGLIPTIN PHOSPHATE
     Indication: TYPE 2 DIABETES MELLITUS
     Dosage: 1 DOSAGE FORMS DAILY;
     Route: 048
     Dates: start: 20180101, end: 20180621
  6. BISOPROLOL HEMIFUMARATE [Concomitant]
     Active Substance: BISOPROLOL FUMARATE
     Route: 048
  7. METFORMIN [Suspect]
     Active Substance: METFORMIN HYDROCHLORIDE
     Indication: TYPE 2 DIABETES MELLITUS
     Dosage: 3 DOSAGE FORMS DAILY;
     Route: 048
     Dates: start: 20180101, end: 20180621
  8. OLANZAPINE. [Concomitant]
     Active Substance: OLANZAPINE
     Route: 048
  9. LASIX [Concomitant]
     Active Substance: FUROSEMIDE
     Route: 048

REACTIONS (3)
  - Lactic acidosis [Unknown]
  - Acute kidney injury [Unknown]
  - Discoloured vomit [Unknown]

NARRATIVE: CASE EVENT DATE: 20180621
